FAERS Safety Report 8920843 (Version 1)
Quarter: 2012Q4

REPORT INFORMATION
  Report Type: 
  Country: US (occurrence: US)
  Receive Date: 20121122
  Receipt Date: 20121122
  Transmission Date: 20130627
  Serious: No
  Sender: FDA-Public Use
  Company Number: US-PFIZER INC-2012288441

PATIENT
  Age: 74 Year
  Sex: Female
  Weight: 66 kg

DRUGS (3)
  1. PREMARIN VAGINAL CREAM [Suspect]
     Indication: VAGINAL DRYNESS
     Dosage: 0.5 g, 2x/week
     Route: 067
  2. PREMARIN VAGINAL CREAM [Suspect]
     Dosage: 0.5 g, weekly
     Dates: end: 20121108
  3. ALUMINIUM W/MAGNESIUM HYDROXIDE/SIMETICONE/ [Concomitant]
     Indication: DYSPEPSIA
     Dosage: one tablespoon, UNK

REACTIONS (1)
  - Alopecia [Not Recovered/Not Resolved]
